FAERS Safety Report 10027636 (Version 4)
Quarter: 2014Q3

REPORT INFORMATION
  Report Type: Spontaneous
  Country: US (occurrence: US)
  Receive Date: 20140321
  Receipt Date: 20140728
  Transmission Date: 20150326
  Serious: Yes (Hospitalization, Disabling, Other)
  Sender: FDA-Public Use
  Company Number: US-009507513-1107USA03604

PATIENT
  Sex: Female
  Weight: 66.68 kg

DRUGS (7)
  1. FOSAMAX [Suspect]
     Active Substance: ALENDRONATE SODIUM
     Dosage: 10 MG, QD
     Route: 048
     Dates: start: 19980611, end: 2009
  2. FOSAMAX [Suspect]
     Active Substance: ALENDRONATE SODIUM
     Indication: OSTEOPOROSIS
     Dosage: UNK UNK, QM
     Route: 048
     Dates: start: 1998, end: 2008
  3. PREMARIN [Concomitant]
     Active Substance: ESTROGENS, CONJUGATED
     Indication: HORMONE THERAPY
     Dosage: 0.625 MG, QD
     Route: 048
     Dates: start: 1988, end: 2004
  4. FOSAMAX [Suspect]
     Active Substance: ALENDRONATE SODIUM
     Dosage: UNK UNK, QW
     Route: 048
     Dates: start: 20041024
  5. FOSAMAX [Suspect]
     Active Substance: ALENDRONATE SODIUM
     Indication: OSTEOPENIA
     Dosage: 70 MG, QW
     Route: 048
     Dates: start: 1998, end: 201002
  6. FOSAMAX [Suspect]
     Active Substance: ALENDRONATE SODIUM
     Dosage: 70 MG, UNK
     Route: 048
     Dates: start: 20081231, end: 20100125
  7. ALENDRONATE SODIUM. [Suspect]
     Active Substance: ALENDRONATE SODIUM
     Dosage: 70 MG, UNK

REACTIONS (65)
  - Neuropathy peripheral [Unknown]
  - Fall [Unknown]
  - Gastric ulcer [Unknown]
  - Femur fracture [Recovered/Resolved]
  - Pulmonary embolism [Unknown]
  - Infusion site extravasation [Unknown]
  - Liver disorder [Unknown]
  - Fall [Unknown]
  - Oedema peripheral [Unknown]
  - Gastrointestinal haemorrhage [Unknown]
  - Migraine [Unknown]
  - Ear pain [Unknown]
  - Back pain [Unknown]
  - Device failure [Unknown]
  - Mitral valve incompetence [Unknown]
  - Vitamin D deficiency [Unknown]
  - Laceration [Unknown]
  - Hypertension [Unknown]
  - Overdose [Unknown]
  - Radiculopathy [Unknown]
  - Nephrolithiasis [Unknown]
  - Stress [Unknown]
  - International normalised ratio increased [Recovered/Resolved]
  - Arthralgia [Unknown]
  - Intramedullary rod insertion [Unknown]
  - Osteotomy [Unknown]
  - Low turnover osteopathy [Unknown]
  - Anxiety [Unknown]
  - Colon adenoma [Unknown]
  - Oophorectomy [Unknown]
  - Calculus ureteric [Unknown]
  - Chest pain [Unknown]
  - Arthralgia [Unknown]
  - Inappropriate schedule of drug administration [Unknown]
  - Adverse drug reaction [Unknown]
  - Bronchitis [Unknown]
  - Bronchitis [Unknown]
  - Intervertebral disc degeneration [Unknown]
  - Panic attack [Unknown]
  - Foot deformity [Unknown]
  - Premature menopause [Unknown]
  - Limb deformity [Unknown]
  - Hepatic enzyme increased [Unknown]
  - Pulmonary embolism [Unknown]
  - Gait disturbance [Unknown]
  - Prothrombin time prolonged [Recovered/Resolved]
  - Arthralgia [Unknown]
  - Pain in extremity [Unknown]
  - Femur fracture [Unknown]
  - Fracture malunion [Unknown]
  - Sinus disorder [Unknown]
  - Sinusitis [Unknown]
  - Back disorder [Unknown]
  - Vertigo [Unknown]
  - Femur fracture [Unknown]
  - Fall [Unknown]
  - Pulmonary embolism [Unknown]
  - Intramedullary rod insertion [Unknown]
  - Dacryostenosis acquired [Unknown]
  - Conjunctivitis [Not Recovered/Not Resolved]
  - Pneumonia [Unknown]
  - Sleep disorder [Not Recovered/Not Resolved]
  - Fatigue [Unknown]
  - Osteoarthritis [Unknown]
  - Muscular weakness [Unknown]

NARRATIVE: CASE EVENT DATE: 19980803
